FAERS Safety Report 14342865 (Version 1)
Quarter: 2017Q4

REPORT INFORMATION
  Report Type: Spontaneous
  Country: US (occurrence: US)
  Receive Date: 20171229
  Receipt Date: 20171229
  Transmission Date: 20180321
  Serious: Yes (Death)
  Sender: FDA-Public Use
  Company Number: None

PATIENT
  Age: 20 Year
  Sex: Male
  Weight: 53 kg

DRUGS (1)
  1. BORTEZOMIB [Suspect]
     Active Substance: BORTEZOMIB
     Indication: HEART TRANSPLANT REJECTION
     Dosage: ?          OTHER FREQUENCY:~EVERY 3-4 DAYS;?
     Route: 040
     Dates: start: 20170804, end: 20170818

REACTIONS (3)
  - Acute respiratory distress syndrome [None]
  - Thrombocytopenia [None]
  - Neuropathy peripheral [None]

NARRATIVE: CASE EVENT DATE: 20170818
